FAERS Safety Report 4821201-4 (Version None)
Quarter: 2005Q4

REPORT INFORMATION
  Report Type: 
  Country: None (occurrence: None)
  Receive Date: 20051102
  Receipt Date: 20051017
  Transmission Date: 20060501
  Serious: No
  Sender: FDA-Public Use
  Company Number: USA0510111099

PATIENT
  Age: 40 Year
  Sex: Female

DRUGS (9)
  1. CYMBALTA [Suspect]
     Indication: IRRITABLE BOWEL SYNDROME
     Dosage: 60 MG
     Dates: start: 20040101
  2. ZOLOFT [Concomitant]
  3. MERCAPTOPURINE [Concomitant]
  4. ASACOL [Concomitant]
  5. NEXIUM [Concomitant]
  6. BECONASE (BECLOMETASONE DIPROPIONATE) [Concomitant]
  7. ALLERGIES [Concomitant]
  8. ALLEGRA [Concomitant]
  9. ACTONEL [Concomitant]

REACTIONS (4)
  - ALANINE AMINOTRANSFERASE INCREASED [None]
  - ASPARTATE AMINOTRANSFERASE INCREASED [None]
  - HEPATIC STEATOSIS [None]
  - SCAR [None]
